FAERS Safety Report 4381205-5 (Version None)
Quarter: 2004Q2

REPORT INFORMATION
  Report Type: 
  Country: None (occurrence: None)
  Receive Date: 20040616
  Receipt Date: 20040611
  Transmission Date: 20050107
  Serious: Yes (Death, Other)
  Sender: FDA-Public Use
  Company Number: 200417803BWH

PATIENT
  Age: 58 Year
  Sex: Male

DRUGS (4)
  1. LEVITRA [Suspect]
     Indication: ERECTILE DYSFUNCTION
     Dates: end: 20031001
  2. LEVITRA [Suspect]
     Indication: ERECTILE DYSFUNCTION
     Dates: start: 20030101
  3. LEVITRA [Suspect]
     Indication: ERECTILE DYSFUNCTION
     Dates: start: 20030901
  4. VIAGRA [Concomitant]

REACTIONS (4)
  - DRUG INEFFECTIVE [None]
  - FALL [None]
  - FEELING HOT [None]
  - MYOCARDIAL INFARCTION [None]
